FAERS Safety Report 16874940 (Version 1)
Quarter: 2019Q4

REPORT INFORMATION
  Report Type: Spontaneous
  Country: US (occurrence: US)
  Receive Date: 20191001
  Receipt Date: 20191001
  Transmission Date: 20200122
  Serious: Yes (Other)
  Sender: FDA-Public Use
  Company Number: US-RADIUS HEALTH INC.-2019US003570

PATIENT
  Age: 74 Year
  Sex: Female

DRUGS (1)
  1. TYMLOS [Suspect]
     Active Substance: ABALOPARATIDE
     Indication: OSTEOPOROSIS POSTMENOPAUSAL
     Dosage: 80 MCG, QD
     Route: 058
     Dates: start: 20190901

REACTIONS (4)
  - Back disorder [Recovering/Resolving]
  - Nasopharyngitis [Not Recovered/Not Resolved]
  - Device use error [Recovered/Resolved]
  - Wrong technique in product usage process [Not Recovered/Not Resolved]

NARRATIVE: CASE EVENT DATE: 201909
